FAERS Safety Report 13795088 (Version 3)
Quarter: 2017Q3

REPORT INFORMATION
  Report Type: Spontaneous
  Country: US (occurrence: US)
  Receive Date: 20170726
  Receipt Date: 20170908
  Transmission Date: 20171127
  Serious: No
  Sender: FDA-Public Use
  Company Number: US-PFIZER INC-2017294146

PATIENT
  Age: 87 Year
  Sex: Female

DRUGS (13)
  1. MULTIVITAMINS [Concomitant]
     Active Substance: VITAMINS
     Indication: VITAMIN SUPPLEMENTATION
     Dosage: 1 DF, DAILY
  2. LYRICA [Suspect]
     Active Substance: PREGABALIN
     Indication: PARAESTHESIA
  3. LYRICA [Suspect]
     Active Substance: PREGABALIN
     Indication: BURNING SENSATION
  4. FISH OIL [Concomitant]
     Active Substance: FISH OIL
     Dosage: UNK
  5. LYRICA [Suspect]
     Active Substance: PREGABALIN
     Indication: NEUROPATHY PERIPHERAL
     Dosage: 50 MG, 2X/DAY
     Route: 048
     Dates: start: 20170629, end: 20170716
  6. LYRICA [Suspect]
     Active Substance: PREGABALIN
     Indication: NERVE INJURY
  7. CARTEOLOL [Concomitant]
     Active Substance: CARTEOLOL
     Indication: GLAUCOMA
     Dosage: 2 GTT, 1X/DAY (1 DROP IN EACH EYE IN THE MORNING)
  8. LYRICA [Suspect]
     Active Substance: PREGABALIN
     Indication: NEUROPATHY PERIPHERAL
  9. CRESTOR [Concomitant]
     Active Substance: ROSUVASTATIN CALCIUM
     Dosage: UNK
  10. PROBIOTIC [Concomitant]
     Active Substance: PROBIOTICS NOS
     Dosage: 1 DF, 1X/DAY (1 IN THE MORNING)
  11. LYRICA [Suspect]
     Active Substance: PREGABALIN
     Indication: NEURALGIA
  12. SPIRONO [Concomitant]
     Indication: BLOOD PRESSURE ABNORMAL
     Dosage: 25 MG, 1X/DAY (25MG ONCE IN THE MORNING)
  13. VITAMIN D3 [Concomitant]
     Active Substance: CHOLECALCIFEROL
     Dosage: UNK

REACTIONS (2)
  - Oedema peripheral [Recovered/Resolved]
  - Prescribed underdose [Unknown]

NARRATIVE: CASE EVENT DATE: 20170629
